FAERS Safety Report 4988301-X (Version None)
Quarter: 2006Q2

REPORT INFORMATION
  Report Type: 
  Country: None (occurrence: None)
  Receive Date: 20060425
  Receipt Date: 20060412
  Transmission Date: 20061013
  Serious: Yes (Life-Threatening, Hospitalization)
  Sender: FDA-Public Use
  Company Number: 2006042157

PATIENT
  Age: 51 Year
  Sex: Female
  Weight: 69 kg

DRUGS (4)
  1. SUTENT [Suspect]
     Indication: RENAL CELL CARCINOMA STAGE UNSPECIFIED
     Dosage: 50 MG (50 MG, 1 IN 1 D), ORAL
     Route: 048
     Dates: start: 20051124
  2. DEXAMETHASONE [Concomitant]
  3. AMLODIPINE [Concomitant]
  4. FAMOTIDINE [Concomitant]

REACTIONS (5)
  - ABDOMINAL PAIN [None]
  - CATHETER RELATED INFECTION [None]
  - DEHYDRATION [None]
  - ILEUS PARALYTIC [None]
  - PHARYNGITIS [None]
